FAERS Safety Report 17788819 (Version 1)
Quarter: 2020Q2

REPORT INFORMATION
  Report Type: Spontaneous
  Country: ES (occurrence: ES)
  Receive Date: 20200514
  Receipt Date: 20200514
  Transmission Date: 20200714
  Serious: Yes (Life-Threatening, Other)
  Sender: FDA-Public Use
  Company Number: ES-B.I. PHARMACEUTICALS,INC./RIDGEFIELD-2020-BI-024334

PATIENT
  Age: 53 Year
  Sex: Female

DRUGS (1)
  1. JARDIANCE [Suspect]
     Active Substance: EMPAGLIFLOZIN
     Indication: DIABETES MELLITUS
     Route: 065

REACTIONS (9)
  - Candida infection [Unknown]
  - Perinephric abscess [Unknown]
  - Septic shock [Not Recovered/Not Resolved]
  - Hypotension [Recovered/Resolved]
  - Oliguria [Unknown]
  - Coagulopathy [Recovered/Resolved]
  - Renal impairment [Unknown]
  - Liver function test abnormal [Recovered/Resolved]
  - Emphysematous pyelonephritis [Not Recovered/Not Resolved]
